FAERS Safety Report 7373790-6 (Version None)
Quarter: 2011Q1

REPORT INFORMATION
  Report Type: 
  Country: None (occurrence: None)
  Receive Date: 20110325
  Receipt Date: 20110321
  Transmission Date: 20110831
  Serious: Yes (Other)
  Sender: FDA-Public Use
  Company Number: US-PFIZER INC-2011047370

PATIENT
  Sex: Female
  Weight: 63.49 kg

DRUGS (3)
  1. NEURONTIN [Suspect]
     Indication: NERVOUS SYSTEM DISORDER
     Dosage: 300 MG, 1X/DAY
     Route: 048
     Dates: start: 20091101
  2. TEMAZEPAM [Concomitant]
     Indication: SLEEP DISORDER
     Dosage: 15 MG, UNK
  3. VALSARTAN [Concomitant]
     Indication: HYPERTENSION
     Dosage: 320 MG

REACTIONS (2)
  - AGEUSIA [None]
  - HEARING IMPAIRED [None]
